FAERS Safety Report 4653120-0 (Version None)
Quarter: 2005Q2

REPORT INFORMATION
  Report Type: 
  Country: None (occurrence: None)
  Receive Date: 20050502
  Receipt Date: 20050502
  Transmission Date: 20051028
  Serious: Yes (Other)
  Sender: FDA-Public Use
  Company Number: None

PATIENT
  Age: 77 Year
  Sex: Male
  Weight: 72.5755 kg

DRUGS (1)
  1. LAMISIL [Suspect]
     Dosage: ONCE A DAY

REACTIONS (4)
  - DEPRESSION [None]
  - MENTAL DISORDER [None]
  - NERVOUS SYSTEM DISORDER [None]
  - PANIC ATTACK [None]
